FAERS Safety Report 5417924-9 (Version None)
Quarter: 2007Q3

REPORT INFORMATION
  Report Type: 
  Country: None (occurrence: None)
  Receive Date: 20070815
  Receipt Date: 20070802
  Transmission Date: 20080115
  Serious: Yes (Hospitalization)
  Sender: FDA-Public Use
  Company Number: M7001-00019-SPO-DE

PATIENT
  Age: 51 Year
  Sex: 0

DRUGS (3)
  1. TARGRETIN [Suspect]
     Indication: LYMPHOMA
     Dosage: ORAL
     Route: 048
  2. FENOFIBRATE [Concomitant]
  3. VORINOSTAT [Concomitant]

REACTIONS (5)
  - APOPTOSIS [None]
  - CONDITION AGGRAVATED [None]
  - EMBOLISM [None]
  - GRANULOMA [None]
  - NECROSIS [None]
